FAERS Safety Report 8556802-3 (Version None)
Quarter: 2012Q3

REPORT INFORMATION
  Report Type: 
  Country: None (occurrence: None)
  Receive Date: 20120801
  Receipt Date: 19841024
  Transmission Date: 20120928
  Serious: Yes (Death, Other)
  Sender: FDA-Public Use
  Company Number: US-009507513-84110043

PATIENT

DRUGS (7)
  1. XYLOCAINE [Concomitant]
     Dates: start: 19820929
  2. ZOMAX [Concomitant]
     Route: 048
     Dates: start: 19820929
  3. MOTRIN [Concomitant]
     Route: 048
     Dates: start: 19820929
  4. DECADRON [Suspect]
     Route: 048
     Dates: start: 19820929
  5. VALIUM [Concomitant]
     Dates: start: 19820929
  6. INDERAL [Concomitant]
     Dates: start: 19820929
  7. LANOXIN [Concomitant]
     Dates: start: 19820929

REACTIONS (1)
  - TOXIC SHOCK SYNDROME [None]
